FAERS Safety Report 10097150 (Version 3)
Quarter: 2014Q3

REPORT INFORMATION
  Report Type: Spontaneous
  Country: US (occurrence: US)
  Receive Date: 20140422
  Receipt Date: 20140702
  Transmission Date: 20150326
  Serious: Yes (Hospitalization)
  Sender: FDA-Public Use
  Company Number: US-009507513-1404USA011243

PATIENT
  Age: 80 Year
  Sex: Female
  Weight: 58.28 kg

DRUGS (7)
  1. CORICIDIN HBP NIGHTTIME [Suspect]
     Active Substance: ACETAMINOPHEN\DEXTROMETHORPHAN HYDROBROMIDE\DOXYLAMINE SUCCINATE
     Indication: OROPHARYNGEAL PAIN
     Dosage: 1 TSP, BID
     Route: 048
  2. TOPROL XL [Concomitant]
     Active Substance: METOPROLOL SUCCINATE
     Indication: HEART RATE
     Dosage: 50 MG, BID
     Route: 048
  3. CORICIDIN HBP NIGHTTIME [Suspect]
     Active Substance: ACETAMINOPHEN\DEXTROMETHORPHAN HYDROBROMIDE\DOXYLAMINE SUCCINATE
     Indication: RHINORRHOEA
     Dosage: .5 DF, BID
     Route: 048
     Dates: start: 20140407, end: 20140412
  4. CORICIDIN HBP NIGHTTIME [Suspect]
     Active Substance: ACETAMINOPHEN\DEXTROMETHORPHAN HYDROBROMIDE\DOXYLAMINE SUCCINATE
     Indication: NASOPHARYNGITIS
  5. SYNTHROID [Concomitant]
     Active Substance: LEVOTHYROXINE SODIUM
     Indication: HYPOTHYROIDISM
     Dosage: 100 MICROGRAM, UNK
     Route: 048
  6. CORICIDIN HBP NIGHTTIME [Suspect]
     Active Substance: ACETAMINOPHEN\DEXTROMETHORPHAN HYDROBROMIDE\DOXYLAMINE SUCCINATE
     Indication: COUGH
     Dosage: .5 DF, TID
     Route: 048
     Dates: start: 20140412, end: 20140412
  7. TAZTIA XT [Concomitant]
     Active Substance: DILTIAZEM HYDROCHLORIDE
     Indication: HEART RATE
     Dosage: 120 MG, QD
     Route: 048

REACTIONS (7)
  - Fall [Unknown]
  - Vertigo [Unknown]
  - Dizziness [Recovered/Resolved]
  - Wrong technique in drug usage process [Unknown]
  - Underdose [Unknown]
  - Asthenia [Unknown]
  - Bronchitis [Unknown]

NARRATIVE: CASE EVENT DATE: 20140413
